FAERS Safety Report 8122438-1 (Version None)
Quarter: 2012Q1

REPORT INFORMATION
  Report Type: 
  Country: None (occurrence: None)
  Receive Date: 20120206
  Receipt Date: 20120123
  Transmission Date: 20120608
  Serious: Yes (Death)
  Sender: FDA-Public Use
  Company Number: JPI-P-013256

PATIENT
  Age: 63 Year
  Sex: Female

DRUGS (7)
  1. QUETIAPINE FUMARATE [Concomitant]
  2. UNSPECIFIED DRUGS, MEDICAMENTS, AND BIOLOGICAL SUBSTANCES [Suspect]
     Indication: PRODUCT USED FOR UNKNOWN INDICATION
     Dates: end: 20101213
  3. DULOXETIME HYDROCHLORIDE [Concomitant]
  4. DIVALPROEX SODIUM [Concomitant]
  5. GAMMA-AMINOBUTYRIC ACID [Concomitant]
  6. XYREM [Suspect]
     Indication: INSOMNIA
     Dosage: 9 GM (4.5 GM, 2 IN 1 D), ORAL
     Route: 048
     Dates: start: 20040519, end: 20101213
  7. UNSPECIFIED PAIN MEDICATIONS [Concomitant]

REACTIONS (2)
  - DIARRHOEA [None]
  - TOXICITY TO VARIOUS AGENTS [None]
